FAERS Safety Report 11756193 (Version 3)
Quarter: 2016Q1

REPORT INFORMATION
  Report Type: Report from Study
  Country: US (occurrence: US)
  Receive Date: 20151119
  Receipt Date: 20160203
  Transmission Date: 20160525
  Serious: Yes (Death, Hospitalization, Other)
  Sender: FDA-Public Use
  Company Number: US-ACTELION-A-US2015-127390

PATIENT
  Age: 72 Year
  Sex: Female

DRUGS (2)
  1. WARFARIN [Concomitant]
     Active Substance: WARFARIN
  2. VELETRI [Suspect]
     Active Substance: EPOPROSTENOL
     Indication: PULMONARY ARTERIAL HYPERTENSION
     Dosage: 28 NG/KG, PER MIN
     Route: 042
     Dates: start: 20150129, end: 20151202

REACTIONS (5)
  - Suicidal ideation [Unknown]
  - Suicide attempt [Unknown]
  - Depression [Unknown]
  - Laceration [Unknown]
  - Disease progression [Fatal]

NARRATIVE: CASE EVENT DATE: 201511
